FAERS Safety Report 13026850 (Version 1)
Quarter: 2016Q4

REPORT INFORMATION
  Report Type: Spontaneous
  Country: US (occurrence: US)
  Receive Date: 20161214
  Receipt Date: 20161214
  Transmission Date: 20170207
  Serious: Yes (Hospitalization)
  Sender: FDA-Public Use
  Company Number: US-UNITED THERAPEUTICS-UNT-2016-018357

PATIENT
  Age: 78 Year
  Sex: Female
  Weight: 73.16 kg

DRUGS (3)
  1. REMODULIN [Suspect]
     Active Substance: TREPROSTINIL
     Dosage: 0.166 ?G/KG, CONTINUING
     Route: 041
  2. REMODULIN [Suspect]
     Active Substance: TREPROSTINIL
     Indication: PULMONARY HYPERTENSION
     Dosage: 0.160 ?G/KG, CONTINUING
     Route: 041
     Dates: start: 20050629
  3. REMODULIN [Suspect]
     Active Substance: TREPROSTINIL
     Dosage: 0.172 ?G/KG, CONTINUING
     Route: 041

REACTIONS (3)
  - Weight decreased [Unknown]
  - Abdominal discomfort [Unknown]
  - Ulcer haemorrhage [Unknown]

NARRATIVE: CASE EVENT DATE: 2016
